FAERS Safety Report 21970490 (Version 1)
Quarter: 2023Q1

REPORT INFORMATION
  Report Type: Spontaneous
  Country: CN (occurrence: CN)
  Receive Date: 20230209
  Receipt Date: 20230209
  Transmission Date: 20230418
  Serious: Yes (Other)
  Sender: FDA-Public Use
  Company Number: None

PATIENT
  Age: 45 Year
  Sex: Female
  Weight: 57.5 kg

DRUGS (6)
  1. CYCLOPHOSPHAMIDE [Suspect]
     Active Substance: CYCLOPHOSPHAMIDE
     Indication: Breast cancer female
     Dosage: 0.9 G, QD, DILUTED WITH 500 ML OF 5% GS
     Route: 041
     Dates: start: 20221014, end: 20221014
  2. CYCLOPHOSPHAMIDE [Suspect]
     Active Substance: CYCLOPHOSPHAMIDE
     Indication: Chemotherapy
  3. DEXTROSE [Suspect]
     Active Substance: DEXTROSE
     Indication: Medication dilution
     Dosage: 500 ML, QD, USED TO DILUTE 0.9 G OF CYCLOPHOSPHAMIDE, CONCENTRATION: 5%
     Route: 041
     Dates: start: 20221014, end: 20221014
  4. DEXTROSE [Suspect]
     Active Substance: DEXTROSE
     Dosage: 250 ML, QD, USED TO DILUTE 120 MG OF DOCETAXEL, CONCENTRATION: 5%
     Route: 041
     Dates: start: 20221014, end: 20221014
  5. DOCETAXEL [Suspect]
     Active Substance: DOCETAXEL
     Indication: Breast cancer female
     Dosage: 120 MG, QD, DILUTED WITH 250ML OF 5% GS
     Route: 041
     Dates: start: 20221014, end: 20221014
  6. DOCETAXEL [Suspect]
     Active Substance: DOCETAXEL
     Indication: Chemotherapy

REACTIONS (5)
  - White blood cell count decreased [Recovered/Resolved]
  - Neutrophil count decreased [Recovered/Resolved]
  - Dysphagia [Recovered/Resolved]
  - Nausea [Recovered/Resolved]
  - Vomiting [Recovered/Resolved]

NARRATIVE: CASE EVENT DATE: 20221015
